FAERS Safety Report 9263635 (Version 1)
Quarter: 2013Q2

REPORT INFORMATION
  Report Type: Spontaneous
  Country: CN (occurrence: CN)
  Receive Date: 20130430
  Receipt Date: 20130430
  Transmission Date: 20140414
  Serious: Yes (Other)
  Sender: FDA-Public Use
  Company Number: CN-JNJFOC-20130411872

PATIENT
  Age: 50 Year
  Sex: Female

DRUGS (1)
  1. DAKTAGOLD [Suspect]
     Indication: TINEA PEDIS
     Route: 061
     Dates: start: 201304

REACTIONS (3)
  - Product counterfeit [Unknown]
  - Pruritus [Recovering/Resolving]
  - Product quality issue [None]
